FAERS Safety Report 16587434 (Version 2)
Quarter: 2019Q3

REPORT INFORMATION
  Report Type: Spontaneous
  Country: US (occurrence: US)
  Receive Date: 20190717
  Receipt Date: 20190816
  Transmission Date: 20191004
  Serious: No
  Sender: FDA-Public Use
  Company Number: US-JNJFOC-20190705822

PATIENT
  Age: 70 Year
  Sex: Male
  Weight: 74.91 kg

DRUGS (5)
  1. CYMBALTA [Concomitant]
     Active Substance: DULOXETINE HYDROCHLORIDE
  2. EPIVIR [Concomitant]
     Active Substance: LAMIVUDINE
  3. WELLBUTRIN [Concomitant]
     Active Substance: BUPROPION HYDROCHLORIDE
     Route: 065
  4. STELARA [Suspect]
     Active Substance: USTEKINUMAB
     Indication: CROHN^S DISEASE
     Route: 058
     Dates: start: 20190226
  5. IMURAN [Concomitant]
     Active Substance: AZATHIOPRINE

REACTIONS (4)
  - Product dose omission [Unknown]
  - Accidental exposure to product [Unknown]
  - Device occlusion [Unknown]
  - Needle issue [Unknown]

NARRATIVE: CASE EVENT DATE: 20190628
